FAERS Safety Report 5290812-7 (Version None)
Quarter: 2007Q2

REPORT INFORMATION
  Report Type: 
  Country: None (occurrence: None)
  Receive Date: 20070409
  Receipt Date: 20070326
  Transmission Date: 20071010
  Serious: Yes (Hospitalization)
  Sender: FDA-Public Use
  Company Number: JP-PFIZER INC-2007013921

PATIENT
  Sex: Female

DRUGS (8)
  1. ZITHROMAC [Suspect]
     Indication: CELLULITIS
     Dosage: DAILY DOSE:500MG
     Route: 048
  2. ALL OTHER THERAPEUTIC PRODUCTS [Concomitant]
  3. FLUITRAN [Concomitant]
     Route: 048
  4. GLUCOBAY [Concomitant]
     Route: 048
  5. MECLOCELIN [Concomitant]
     Route: 048
  6. JUVELA NICOTINATE [Concomitant]
     Route: 048
  7. RANITIDINE HYDROCHLORIDE [Concomitant]
     Route: 048
  8. NITROGLYCERIN [Concomitant]
     Route: 062

REACTIONS (1)
  - FEELING ABNORMAL [None]
